FAERS Safety Report 19439629 (Version 1)
Quarter: 2021Q2

REPORT INFORMATION
  Report Type: Report from Study
  Country: AT (occurrence: AT)
  Receive Date: 20210619
  Receipt Date: 20210619
  Transmission Date: 20210717
  Serious: Yes (Other)
  Sender: FDA-Public Use
  Company Number: NVSC2021AT132020

PATIENT

DRUGS (1)
  1. METFORMIN [Suspect]
     Active Substance: METFORMIN HYDROCHLORIDE
     Indication: PRODUCT USED FOR UNKNOWN INDICATION
     Dosage: UNK
     Route: 065

REACTIONS (19)
  - Arthralgia [Unknown]
  - Depression [Unknown]
  - Hunger [Unknown]
  - Coronary artery disease [Unknown]
  - Cardiovascular disorder [Unknown]
  - Liver disorder [Unknown]
  - Cerebrovascular accident [Unknown]
  - Weight increased [Unknown]
  - Hypoaesthesia [Unknown]
  - Mood swings [Unknown]
  - Peripheral arterial occlusive disease [Unknown]
  - Angina pectoris [Unknown]
  - Paraesthesia [Unknown]
  - Fatigue [Unknown]
  - Vision blurred [Unknown]
  - Hypoglycaemia [Unknown]
  - Transient ischaemic attack [Unknown]
  - Sleep apnoea syndrome [Unknown]
  - Gout [Unknown]
